FAERS Safety Report 10206534 (Version 11)
Quarter: 2015Q2

REPORT INFORMATION
  Report Type: Spontaneous
  Country: US (occurrence: US)
  Receive Date: 20140530
  Receipt Date: 20150424
  Transmission Date: 20150821
  Serious: Yes (Hospitalization, Other)
  Sender: FDA-Public Use
  Company Number: US-GLAXOSMITHKLINE-A1025999A

PATIENT
  Age: 52 Year
  Sex: Male

DRUGS (12)
  1. FLOLAN [Suspect]
     Active Substance: EPOPROSTENOL SODIUM
     Dosage: UNK
     Dates: start: 20130513
  2. WARFARIN SODIUM. [Concomitant]
     Active Substance: WARFARIN SODIUM
  3. FLOLAN [Suspect]
     Active Substance: EPOPROSTENOL SODIUM
     Dosage: UNK
     Dates: start: 20130513
  4. FLOLAN [Suspect]
     Active Substance: EPOPROSTENOL SODIUM
     Dosage: UNK
     Dates: start: 20130513
  5. FLOLAN [Suspect]
     Active Substance: EPOPROSTENOL SODIUM
     Dosage: 37 NG/KG/MIN CONTINUOUS; CONCENTRATION: 45,000 NG/ML; PUMP RATE: 86 ML/DAY; VIAL STRENGTH: 1.5 MG
     Dates: start: 20130509
  6. FLOLAN [Suspect]
     Active Substance: EPOPROSTENOL SODIUM
     Dosage: UNK
     Dates: start: 20130513
  7. FLOLAN [Suspect]
     Active Substance: EPOPROSTENOL SODIUM
     Dosage: 37 NG/KG/MIN CONTINUOUS; CONCENTRATION: 45,000 NG/ML; PUMP RATE: 86 ML/DAY; VIAL STRENGTH: 1.5 MG
     Dates: start: 20130612
  8. FLOLAN [Suspect]
     Active Substance: EPOPROSTENOL SODIUM
     Dosage: UNK
     Dates: start: 20130513
  9. FLOLAN [Suspect]
     Active Substance: EPOPROSTENOL SODIUM
     Dosage: 35 NG/KG/MIN CONTINUOUS; CONCENTRATION: 45,000 NG/ML; PUMP RATE: 82 ML/DAY; VIAL STRENGTH: 1.5 MG
     Dates: start: 20130612
  10. FLOLAN [Suspect]
     Active Substance: EPOPROSTENOL SODIUM
     Indication: PULMONARY ARTERIAL HYPERTENSION
     Dosage: CONCENTRATION 15,000 NG/ML VIAL STRENGTH 1.5 MG27 NG/KG/MIN; CONC: 45000 NG/ML, VIAL STRENGTH: [...]
     Route: 042
     Dates: start: 20130509
  11. OPSUMIT [Concomitant]
     Active Substance: MACITENTAN
  12. REVATIO [Concomitant]
     Active Substance: SILDENAFIL CITRATE

REACTIONS (19)
  - Intensive care [Recovered/Resolved]
  - Pain in extremity [Unknown]
  - Dyspnoea [Unknown]
  - Pulmonary arterial hypertension [Unknown]
  - Transplant [Unknown]
  - Catheterisation cardiac [Unknown]
  - Rash [Recovering/Resolving]
  - Muscle spasms [Unknown]
  - Pallor [Recovered/Resolved]
  - Underdose [Recovered/Resolved]
  - Infusion site irritation [Recovering/Resolving]
  - Pain in jaw [Unknown]
  - Presyncope [Unknown]
  - Chest pain [Unknown]
  - Dizziness [Recovered/Resolved]
  - Catheter site erythema [Recovering/Resolving]
  - Hospitalisation [Not Recovered/Not Resolved]
  - Fatigue [Recovered/Resolved]
  - Device issue [Recovered/Resolved]

NARRATIVE: CASE EVENT DATE: 201308
